FAERS Safety Report 5970857-1 (Version None)
Quarter: 2008Q4

REPORT INFORMATION
  Report Type: 
  Country: None (occurrence: None)
  Receive Date: 20081127
  Receipt Date: 20081117
  Transmission Date: 20090506
  Serious: Yes (Other)
  Sender: FDA-Public Use
  Company Number: JP-RANBAXY-2008RR-19403

PATIENT
  Age: 26 Year
  Sex: Male

DRUGS (4)
  1. PENTAZOCINE LACTATE [Suspect]
     Indication: THYROID CANCER
     Dosage: 60 MG, UNK
  2. DROPERIDOL [Concomitant]
     Indication: THYROID CANCER
  3. LIDOCAINE [Concomitant]
     Indication: LOCAL ANAESTHESIA
  4. EPINEPHRINE [Concomitant]
     Indication: LOCAL ANAESTHESIA

REACTIONS (1)
  - GRAND MAL CONVULSION [None]
